FAERS Safety Report 4396426-5 (Version None)
Quarter: 2004Q3

REPORT INFORMATION
  Report Type: 
  Country: None (occurrence: None)
  Receive Date: 20040709
  Receipt Date: 20040701
  Transmission Date: 20050211
  Serious: Yes (Hospitalization)
  Sender: FDA-Public Use
  Company Number: 2004-116441-NL

PATIENT
  Age: 82 Year
  Sex: Male

DRUGS (5)
  1. TICE BCG [Suspect]
     Indication: BLADDER CANCER
     Route: 043
     Dates: start: 20040304, end: 20040415
  2. DIGOXIN [Concomitant]
  3. ATENOLOL [Concomitant]
  4. MAXZIDE [Concomitant]
  5. AUGMENTIN [Concomitant]

REACTIONS (6)
  - COUGH [None]
  - DRUG INEFFECTIVE [None]
  - MYALGIA [None]
  - PYREXIA [None]
  - SKIN REACTION [None]
  - TUBERCULOSIS [None]
